FAERS Safety Report 10669683 (Version 1)
Quarter: 2014Q4

REPORT INFORMATION
  Report Type: Spontaneous
  Country: US (occurrence: US)
  Receive Date: 20141222
  Receipt Date: 20141222
  Transmission Date: 20150529
  Serious: No
  Sender: FDA-Public Use
  Company Number: US-GLAXOSMITHKLINE-A1059025A

PATIENT

DRUGS (5)
  1. PROTONIX [Concomitant]
     Active Substance: PANTOPRAZOLE SODIUM
  2. AVODART [Suspect]
     Active Substance: DUTASTERIDE
     Indication: PROSTATECTOMY
     Route: 048
     Dates: start: 20131031
  3. PLAVIX [Concomitant]
     Active Substance: CLOPIDOGREL BISULFATE
  4. RESTORIL [Concomitant]
     Active Substance: TEMAZEPAM
  5. LYRICA [Concomitant]
     Active Substance: PREGABALIN

REACTIONS (2)
  - Breast swelling [Not Recovered/Not Resolved]
  - Breast tenderness [Unknown]

NARRATIVE: CASE EVENT DATE: 20131114
